FAERS Safety Report 25046186 (Version 1)
Quarter: 2025Q1

REPORT INFORMATION
  Report Type: Report from Study
  Country: BY (occurrence: BY)
  Receive Date: 20250306
  Receipt Date: 20250306
  Transmission Date: 20250409
  Serious: Yes (Death, Other)
  Sender: MYLAN
  Company Number: BY-MYLANLABS-2025M1019422

PATIENT
  Age: 54 Year
  Sex: Male
  Weight: 56 kg

DRUGS (6)
  1. PRETOMANID [Suspect]
     Active Substance: PRETOMANID
     Indication: Tuberculosis
     Dosage: 200 MILLIGRAM, QD (200 MG OD PO)
     Dates: start: 20230822, end: 20240207
  2. BEDAQUILINE [Suspect]
     Active Substance: BEDAQUILINE
     Indication: Tuberculosis
     Dosage: 400 MILLIGRAM, QD (400 MG OD FOR 2 WEEKS
     Dates: start: 20230822
  3. BEDAQUILINE [Suspect]
     Active Substance: BEDAQUILINE
     Dosage: 200 MILLIGRAM, 3XW (200 MG TIW PO)
     Dates: end: 20240207
  4. LINEZOLID [Suspect]
     Active Substance: LINEZOLID
     Indication: Tuberculosis
     Dosage: 600 MILLIGRAM, QD (600 MG OD PO FOR 112  DOSES)
     Dates: start: 20230822
  5. LINEZOLID [Suspect]
     Active Substance: LINEZOLID
     Dosage: 300 MILLIGRAM, QD (300 MG OD)
     Dates: end: 20240207
  6. CLOFAZIMINE [Suspect]
     Active Substance: CLOFAZIMINE
     Indication: Tuberculosis
     Dosage: 100 MILLIGRAM, QD (100 MG OD PO)
     Dates: start: 20230822, end: 20240207

REACTIONS (1)
  - Pneumonia klebsiella [Fatal]

NARRATIVE: CASE EVENT DATE: 20240617
